FAERS Safety Report 10064687 (Version 1)
Quarter: 2014Q2

REPORT INFORMATION
  Report Type: Spontaneous
  Country: US (occurrence: None)
  Receive Date: 20140404
  Receipt Date: 20140404
  Transmission Date: 20141212
  Serious: Yes (Life-Threatening)
  Sender: FDA-Public Use
  Company Number: FK201401113

PATIENT
  Age: 24 Year
  Sex: Female

DRUGS (6)
  1. PROPOFOL (MANUFACTURER UNKNOWN) (PROPOFOL) (PROPOFOL) [Suspect]
     Indication: GENERAL ANAESTHESIA
     Dosage: 1 IN 1 D?(NOT OTHERWISE SPECIFIED)
     Route: 042
     Dates: start: 20111102, end: 20111102
  2. ROCURONIUM [Suspect]
     Indication: GENERAL ANAESTHESIA
     Dosage: 1 IN 1 D?(NOT OTHERWISE SPECIFIED)
     Route: 042
     Dates: start: 20111102, end: 20111102
  3. DEXAMETHASONE (DEXAMETHASONE) (DEXAMETHASONE) [Concomitant]
  4. CEFAZOLINE (CEFAZOLIN SODIUM) (CEFAZOLIN SODIUM) [Concomitant]
  5. LIDOCAINE (CEFAZOLIN SODIUM) (CEFAZOLIN SODIUM) [Concomitant]
  6. FENTANYL (FENTANYL) [Suspect]
     Indication: GENERAL ANAESTHESIA
     Dosage: 1 IN 1 D?(NOT OTHERWISE SPECIFIED)
     Route: 042
     Dates: start: 20111102, end: 20111102

REACTIONS (3)
  - Ventricular hypokinesia [None]
  - Electrocardiogram ST segment elevation [None]
  - Hypotension [None]
